FAERS Safety Report 5729770-7 (Version None)
Quarter: 2008Q2

REPORT INFORMATION
  Report Type: 
  Country: None (occurrence: None)
  Receive Date: 20080501
  Receipt Date: 20080416
  Transmission Date: 20081010
  Serious: Yes (Other)
  Sender: FDA-Public Use
  Company Number: 2008EU000754

PATIENT
  Age: 67 Year
  Sex: Female

DRUGS (1)
  1. PROGRAF [Suspect]
     Indication: RENAL TRANSPLANT
     Dosage: /D

REACTIONS (3)
  - DRUG TOXICITY [None]
  - NEPHROCALCINOSIS [None]
  - RENAL TUBULAR DISORDER [None]
